FAERS Safety Report 7058850-1 (Version None)
Quarter: 2010Q4

REPORT INFORMATION
  Report Type: 
  Country: None (occurrence: None)
  Receive Date: 20101022
  Receipt Date: 20101011
  Transmission Date: 20110411
  Serious: Yes (Hospitalization, Other)
  Sender: FDA-Public Use
  Company Number: US-ELI_LILLY_AND_COMPANY-US201003008242

PATIENT
  Sex: Female

DRUGS (13)
  1. FORTEO [Suspect]
     Indication: OSTEOPOROSIS
     Dosage: 20 UG, DAILY (1/D)
     Dates: start: 20090501
  2. LASIX [Concomitant]
  3. ASPIRIN [Concomitant]
  4. AVAPRO [Concomitant]
  5. TENORMIN [Concomitant]
  6. MULTI-VITAMIN [Concomitant]
  7. CALCIUM [Concomitant]
  8. CARDIZEM [Concomitant]
  9. ALLOPURINOL [Concomitant]
  10. DURAGESIC-100 [Concomitant]
     Dosage: 2.5 D/F, UNKNOWN
  11. VICODIN [Concomitant]
  12. LYRICA [Concomitant]
  13. VYTORIN [Concomitant]

REACTIONS (5)
  - FALL [None]
  - IMPAIRED HEALING [None]
  - PAIN IN EXTREMITY [None]
  - UPPER LIMB FRACTURE [None]
  - WOUND [None]
